FAERS Safety Report 10377938 (Version 1)
Quarter: 2014Q3

REPORT INFORMATION
  Report Type: Report from Study
  Country: FR (occurrence: FR)
  Receive Date: 20140812
  Receipt Date: 20140812
  Transmission Date: 20150326
  Serious: Yes (Death)
  Sender: FDA-Public Use
  Company Number: FR-009507513-1408FRA005421

PATIENT
  Age: 60 Year
  Sex: Female

DRUGS (4)
  1. DAUNORUBICIN HYDROCHLORIDE. [Suspect]
     Active Substance: DAUNORUBICIN HYDROCHLORIDE
     Indication: ACUTE LEUKAEMIA
     Dosage: 60 MG/M2, QD
     Route: 042
     Dates: start: 20100421, end: 20100423
  2. ZYPREXA [Suspect]
     Active Substance: OLANZAPINE
  3. CYTARABINE. [Suspect]
     Active Substance: CYTARABINE
     Indication: ACUTE LEUKAEMIA
     Dosage: 200 MG/M2, UNK
     Dates: start: 20100421, end: 20100427
  4. TIENAM IV 250MG/250MG, POUDRE POUR PERFUSION [Suspect]
     Active Substance: CILASTATIN SODIUM\IMIPENEM
     Dosage: UNK

REACTIONS (3)
  - Toxic encephalopathy [Fatal]
  - Multi-organ failure [Fatal]
  - Septic shock [Fatal]

NARRATIVE: CASE EVENT DATE: 20100501
